FAERS Safety Report 25976985 (Version 2)
Quarter: 2025Q4

REPORT INFORMATION
  Report Type: Spontaneous
  Country: EU (occurrence: EU)
  Receive Date: 20251030
  Receipt Date: 20251104
  Transmission Date: 20260117
  Serious: Yes (Other)
  Sender: IPSEN BIOPHARMACEUTICALS, INC.
  Company Number: EU-IPSEN Group, Research and Development-2025-26467

PATIENT
  Age: 45 Year
  Sex: Male

DRUGS (7)
  1. DYSPORT [Suspect]
     Active Substance: ABOBOTULINUMTOXINA
     Indication: Dystonia
     Dosage: TOTALING 1000 UNITS?DIVIDED AMONG PARASPINAL MUSCLES (600 UNITS), THE RIGHT TRAPEZIUS (200 UNITS), AND THE LEFT BICEPS FEMORIS (INITIALLY 200 UNITS, INCREASED TO 300 UNITS IN SUBSEQUENT SESSIONS
  2. DYSPORT [Suspect]
     Active Substance: ABOBOTULINUMTOXINA
     Indication: Dystonia
  3. DYSPORT [Suspect]
     Active Substance: ABOBOTULINUMTOXINA
     Indication: Off label use
  4. QUINAPRIL [Concomitant]
     Active Substance: QUINAPRIL
     Indication: Hypertension
  5. BISOPROLOL [Concomitant]
     Active Substance: BISOPROLOL
     Indication: Hypertension
  6. BIPERIDEN [Concomitant]
     Active Substance: BIPERIDEN
  7. BIPERIDEN [Concomitant]
     Active Substance: BIPERIDEN

REACTIONS (2)
  - Colon cancer [Unknown]
  - Off label use [Unknown]
